FAERS Safety Report 8036221-9 (Version None)
Quarter: 2012Q1

REPORT INFORMATION
  Report Type: 
  Country: None (occurrence: None)
  Receive Date: 20120111
  Receipt Date: 20120105
  Transmission Date: 20120608
  Serious: Yes (Other)
  Sender: FDA-Public Use
  Company Number: PHHY2012BR000871

PATIENT
  Sex: Female

DRUGS (6)
  1. VENLAFAXINE HYDROCHLORIDE [Concomitant]
     Indication: ANXIETY
     Dosage: 75MG, 1 TABLET PER DAY
     Route: 048
  2. SINGULAIR [Concomitant]
     Indication: BRONCHITIS
     Dosage: 10 MG,1 TABLET AT NIGHT
     Route: 048
  3. CRESTOR [Concomitant]
     Indication: SKIN DISORDER
     Dosage: 10MG, HALF TABLET AT NIGHT
     Route: 048
  4. AMIODARONE HCL [Concomitant]
     Indication: CARDIAC DISORDER
     Dosage: 2.5 MG, 1 TABLET I MORNING
     Route: 048
  5. EXELON [Suspect]
     Indication: CEREBROVASCULAR ACCIDENT
     Dosage: 2.5 ML IN THE MORNING AND AT NIGHT
     Route: 048
  6. MOTILIUM [Concomitant]
     Indication: DYSPHAGIA

REACTIONS (1)
  - THROMBOSIS [None]
